FAERS Safety Report 4666267-X (Version None)
Quarter: 2005Q2

REPORT INFORMATION
  Report Type: 
  Country: None (occurrence: None)
  Receive Date: 20050518
  Receipt Date: 20050518
  Transmission Date: 20051028
  Serious: Yes (Other)
  Sender: FDA-Public Use
  Company Number: None

PATIENT
  Sex: Male
  Weight: 148.3262 kg

DRUGS (1)
  1. TRIAMTERENE W/ HYDROCHLOROTHIAZIDE [Suspect]
     Indication: OEDEMA
     Dosage: 1 TABLET DAILY

REACTIONS (3)
  - DRUG INEFFECTIVE [None]
  - OEDEMA [None]
  - THERAPEUTIC RESPONSE UNEXPECTED WITH DRUG SUBSTITUTION [None]
